FAERS Safety Report 7531394-6 (Version None)
Quarter: 2011Q2

REPORT INFORMATION
  Report Type: 
  Country: None (occurrence: None)
  Receive Date: 20110608
  Receipt Date: 20110525
  Transmission Date: 20111010
  Serious: Yes (Hospitalization)
  Sender: FDA-Public Use
  Company Number: PHHY2011NL45107

PATIENT
  Sex: Male

DRUGS (3)
  1. ZOMETA [Suspect]
     Indication: PROSTATE CANCER
     Dosage: 4MG/5ML, ONCE PER 28 DAYS
     Route: 042
     Dates: start: 20101201
  2. ZOMETA [Suspect]
     Dosage: 4 MG/5ML, ONCE PER 28 DAYS
     Route: 042
     Dates: start: 20110426
  3. ZOMETA [Suspect]
     Dosage: 4 MG/5ML, ONCE PER 28 DAYS
     Route: 042
     Dates: start: 20110525

REACTIONS (1)
  - GASTROINTESTINAL PERFORATION [None]
